FAERS Safety Report 7213218-X (Version None)
Quarter: 2011Q1

REPORT INFORMATION
  Report Type: 
  Country: None (occurrence: None)
  Receive Date: 20110106
  Receipt Date: 20101229
  Transmission Date: 20110831
  Serious: Yes (Other)
  Sender: FDA-Public Use
  Company Number: GB-TEVA-260017ISR

PATIENT
  Age: 69 Year
  Sex: Male

DRUGS (13)
  1. ROSUVASTATIN [Concomitant]
  2. SERETIDE (FLUTICASONE+SALMETEROL) [Concomitant]
  3. ISOSORBIDE DINITRATE [Concomitant]
  4. ACETYLSALICYLIC ACID [Interacting]
     Indication: CARDIAC ARREST
  5. STEROID [Concomitant]
     Indication: PLEURISY
  6. MELOXICAM [Interacting]
     Indication: PAIN
     Dates: start: 20100916, end: 20100918
  7. OMEPRAZOLE [Concomitant]
  8. BISOPROLOL [Suspect]
     Indication: BLOOD PRESSURE
  9. TIOTROPIUM [Concomitant]
     Route: 055
  10. RAMIPRIL [Interacting]
     Indication: BLOOD PRESSURE
  11. ACETYLSALICYLIC ACID [Interacting]
     Indication: MYOCARDIAL INFARCTION
  12. QUININE [Concomitant]
  13. SALBUTAMOL [Concomitant]
     Route: 055

REACTIONS (9)
  - URINE COLOUR ABNORMAL [None]
  - EYE MOVEMENT DISORDER [None]
  - SOMNOLENCE [None]
  - DRUG INTERACTION [None]
  - DELIRIUM [None]
  - CONFUSIONAL STATE [None]
  - POLLAKIURIA [None]
  - HALLUCINATION [None]
  - DIARRHOEA [None]
